FAERS Safety Report 16347044 (Version 1)
Quarter: 2019Q2

REPORT INFORMATION
  Report Type: Spontaneous
  Country: US (occurrence: US)
  Receive Date: 20190523
  Receipt Date: 20190523
  Transmission Date: 20190711
  Serious: Yes (Other)
  Sender: FDA-Public Use
  Company Number: US-BAYER-2019-099894

PATIENT
  Age: 48 Year
  Sex: Female

DRUGS (3)
  1. ACETYLSALICYLIC ACID (CARDIO) [Suspect]
     Active Substance: ASPIRIN
     Dosage: UNK
  2. XARELTO [Interacting]
     Active Substance: RIVAROXABAN
  3. CLOPIDOGREL [Interacting]
     Active Substance: CLOPIDOGREL BISULFATE

REACTIONS (3)
  - Vaginal haemorrhage [None]
  - Product administration error [None]
  - Labelled drug-drug interaction medication error [None]
